FAERS Safety Report 22988337 (Version 5)
Quarter: 2023Q4

REPORT INFORMATION
  Report Type: Spontaneous
  Country: US (occurrence: US)
  Receive Date: 20230926
  Receipt Date: 20231211
  Transmission Date: 20240110
  Serious: Yes (Other)
  Sender: FDA-Public Use
  Company Number: US-BRISTOL-MYERS SQUIBB COMPANY-2023-136443

PATIENT
  Age: 66 Year
  Sex: Male

DRUGS (1)
  1. POMALYST [Suspect]
     Active Substance: POMALIDOMIDE
     Indication: Plasma cell myeloma
     Dosage: TAKE 1 WHOLE CAPSULE BY MOUTH WITH WATER, W/ OR W/O FOOD AT THE ?SAME TIME DAILY ON DAYS 1-21 OF EAC
     Route: 048
     Dates: start: 20230919

REACTIONS (7)
  - Fatigue [Recovered/Resolved]
  - Nausea [Unknown]
  - Dysgeusia [Unknown]
  - Pruritus [Recovered/Resolved]
  - Urinary tract disorder [Not Recovered/Not Resolved]
  - Genital disorder [Not Recovered/Not Resolved]
  - COVID-19 [Not Recovered/Not Resolved]

NARRATIVE: CASE EVENT DATE: 20231128
